FAERS Safety Report 5163403-6 (Version None)
Quarter: 2006Q4

REPORT INFORMATION
  Report Type: 
  Country: None (occurrence: None)
  Receive Date: 20061121
  Receipt Date: 20061113
  Transmission Date: 20070319
  Serious: Yes (Other)
  Sender: FDA-Public Use
  Company Number: CHPA2006US10278

PATIENT
  Sex: Female

DRUGS (2)
  1. EXCEDRIN (MIGRAINE) [Suspect]
     Dosage: 2 DF, EACH MORNING, ORAL; Q4H, DURING WORK DAY, ORAL
     Route: 048
  2. ASPIRIN [Suspect]

REACTIONS (4)
  - BREAST CANCER [None]
  - DRUG ABUSER [None]
  - INAPPROPRIATE SCHEDULE OF DRUG ADMINISTRATION [None]
  - VASCULAR RUPTURE [None]
